FAERS Safety Report 5301291-5 (Version None)
Quarter: 2007Q2

REPORT INFORMATION
  Report Type: 
  Country: None (occurrence: None)
  Receive Date: 20070411
  Receipt Date: 20070329
  Transmission Date: 20071010
  Serious: Yes (Hospitalization)
  Sender: FDA-Public Use
  Company Number: 2005JP001684

PATIENT
  Sex: Male
  Weight: 74 kg

DRUGS (3)
  1. PROGRAF [Suspect]
     Indication: DERMATITIS ATOPIC
     Dosage: 5 G, D/TOPICAL
     Route: 061
  2. MYSER (DIFLURPREDNATE) EXTERNAL [Concomitant]
  3. KINDAVATE (CLOBETASONE BUTYRATE) OINTMENT [Concomitant]

REACTIONS (4)
  - CELL MARKER INCREASED [None]
  - CHROMOSOME ABNORMALITY [None]
  - GASTROINTESTINAL MOTILITY DISORDER [None]
  - NON-HODGKIN'S LYMPHOMA [None]
